FAERS Safety Report 21870001 (Version 1)
Quarter: 2023Q1

REPORT INFORMATION
  Report Type: Spontaneous
  Country: ES (occurrence: ES)
  Receive Date: 20230117
  Receipt Date: 20230117
  Transmission Date: 20230418
  Serious: Yes (Other)
  Sender: FDA-Public Use
  Company Number: None

PATIENT
  Age: 78 Year
  Sex: Female
  Weight: 65 kg

DRUGS (5)
  1. JENTADUETO [Suspect]
     Active Substance: LINAGLIPTIN\METFORMIN HYDROCHLORIDE
     Indication: Diabetes mellitus
     Route: 048
     Dates: start: 20221222, end: 20230105
  2. ALOPURINOL NORMON 100 mg COMPRIMIDOS EFG , 100 comprimidos [Concomitant]
     Indication: Hyperuricaemia
     Dosage: 4 TABLET EVERY 7DAYS
     Route: 048
     Dates: start: 20200101
  3. ATORVASTATINA CINFA 20 mg COMPRIMIDOS RECUBIERTOS CON PELICULA EFG , 2 [Concomitant]
     Indication: Dyslipidaemia
     Route: 048
     Dates: start: 20180101
  4. BISOPROLOL TEVA 10 MG COMPRIMIDOS RECUBIERTOS CON PELICULA EFG, 28 com [Concomitant]
     Indication: Hypertension
     Route: 048
     Dates: start: 20180101
  5. PARAPRES 32 mg COMPRIMIDOS, 28 comprimidos [Concomitant]
     Indication: Hypertension
     Route: 048
     Dates: start: 20180101

REACTIONS (4)
  - Abdominal pain [Recovered/Resolved]
  - Vomiting [Recovered/Resolved]
  - Pancreatitis [Recovered/Resolved]
  - Nausea [Recovered/Resolved]

NARRATIVE: CASE EVENT DATE: 20230101
